FAERS Safety Report 4363775-6 (Version None)
Quarter: 2004Q2

REPORT INFORMATION
  Report Type: 
  Country: None (occurrence: None)
  Receive Date: 20040521
  Receipt Date: 20040505
  Transmission Date: 20050107
  Serious: Yes (Other)
  Sender: FDA-Public Use
  Company Number: 2004030413

PATIENT
  Age: 19 Year
  Sex: Male
  Weight: 50 kg

DRUGS (9)
  1. ZIPRASIDONE (CAPS) (ZIPRASIDONE) [Suspect]
     Indication: SCHIZOPHRENIA
     Dosage: 40 MG AND 80 MG (2 IN 1 D), ORAL
     Route: 048
     Dates: start: 20040415, end: 20040422
  2. HALOPERIDOL [Concomitant]
  3. CLONAZEPAM [Concomitant]
  4. BIPERIDEN HYDROCHLORIDE TAB [Concomitant]
  5. LEVOMEPROMAZINE (LEVOMEPROMAZINE) [Concomitant]
  6. IMIPRAMINE [Concomitant]
  7. LORAZEPAM [Concomitant]
  8. ZIPRASIDONE (ZIPRASIDONE) [Concomitant]
  9. FLURAZEPAM [Concomitant]

REACTIONS (10)
  - APHASIA [None]
  - BLOOD CREATINE PHOSPHOKINASE INCREASED [None]
  - CONFUSIONAL STATE [None]
  - DYSPHAGIA [None]
  - MOVEMENT DISORDER [None]
  - MUSCLE RIGIDITY [None]
  - NEUROLEPTIC MALIGNANT SYNDROME [None]
  - PROSTRATION [None]
  - TACHYCARDIA [None]
  - TREMOR [None]
